FAERS Safety Report 7947262-1 (Version None)
Quarter: 2011Q4

REPORT INFORMATION
  Report Type: 
  Country: None (occurrence: None)
  Receive Date: 20111129
  Receipt Date: 20111115
  Transmission Date: 20120403
  Serious: Yes (Hospitalization)
  Sender: FDA-Public Use
  Company Number: US-ASTRAZENECA-2011SE69777

PATIENT
  Age: 48 Year
  Sex: Female

DRUGS (8)
  1. GLUCOTROL [Concomitant]
     Route: 048
  2. SYNTHROID [Concomitant]
     Route: 048
  3. GLUCOPHAGE [Concomitant]
     Route: 048
  4. ZOCOR [Concomitant]
     Route: 048
  5. ANTIPSYCHOTICS [Concomitant]
  6. ZESTRIL [Concomitant]
     Route: 048
  7. SEROQUEL [Suspect]
     Dosage: 200 MG Q.A.M., 100 MG Q.1 P.M. AND 200 MG NIGHTLY
     Route: 048
  8. PROLIXIN [Suspect]
     Dosage: 10 MG Q.A.M. AND NIGHTLY
     Route: 048

REACTIONS (3)
  - ANXIETY [None]
  - SCHIZOPHRENIA, PARANOID TYPE [None]
  - INSOMNIA [None]
